FAERS Safety Report 16469403 (Version 1)
Quarter: 2019Q3

REPORT INFORMATION
  Report Type: Spontaneous
  Country: US (occurrence: US)
  Receive Date: 20190621
  Receipt Date: 20190621
  Transmission Date: 20191004
  Serious: No
  Sender: FDA-Public Use
  Company Number: None

PATIENT
  Age: 35 Year
  Sex: Female
  Weight: 68.85 kg

DRUGS (3)
  1. AJOVY [Suspect]
     Active Substance: FREMANEZUMAB-VFRM
     Indication: MIGRAINE
     Dates: start: 20190516
  2. BLISOVI 24 FE [Concomitant]
     Active Substance: ETHINYL ESTRADIOL\NORETHINDRONE ACETATE
  3. IBPROPHEN 500MG [Concomitant]
     Active Substance: IBUPROFEN

REACTIONS (4)
  - Fatigue [None]
  - Insomnia [None]
  - Discomfort [None]
  - Constipation [None]

NARRATIVE: CASE EVENT DATE: 20190518
